FAERS Safety Report 8858408 (Version 1)
Quarter: 2012Q4

REPORT INFORMATION
  Report Type: 
  Country: CA (occurrence: CA)
  Receive Date: 20121024
  Receipt Date: 20121024
  Transmission Date: 20130627
  Serious: Yes (Other)
  Sender: FDA-Public Use
  Company Number: PHHY2008CA01088

PATIENT
  Age: 34 Year
  Sex: Female

DRUGS (3)
  1. SANDOSTATIN LAR [Suspect]
     Indication: CARCINOID TUMOUR
     Dosage: 30 mg every 4 weeks
     Route: 030
     Dates: start: 20071213, end: 20090107
  2. SANDOSTATIN LAR [Suspect]
     Indication: NEUROENDOCRINE TUMOUR
  3. SANDOSTATIN [Suspect]
     Indication: CARCINOID SYNDROME
     Dosage: 250 ug, Q8H
     Route: 058

REACTIONS (8)
  - Pancreatic carcinoma [Unknown]
  - Carcinoid syndrome [Unknown]
  - Diarrhoea [Unknown]
  - Haemorrhoids [Unknown]
  - Feeling abnormal [Unknown]
  - Palpitations [Unknown]
  - Dyspnoea [Unknown]
  - Flushing [Unknown]
